FAERS Safety Report 5837076-0 (Version None)
Quarter: 2008Q3

REPORT INFORMATION
  Report Type: 
  Country: None (occurrence: None)
  Receive Date: 20080807
  Receipt Date: 20071107
  Transmission Date: 20090109
  Serious: No
  Sender: FDA-Public Use
  Company Number: A0691880A

PATIENT
  Sex: Female

DRUGS (1)
  1. TAGAMET [Suspect]

REACTIONS (1)
  - DRUG INEFFECTIVE [None]
